FAERS Safety Report 14063134 (Version 2)
Quarter: 2017Q4

REPORT INFORMATION
  Report Type: Spontaneous
  Country: GB (occurrence: GB)
  Receive Date: 20171009
  Receipt Date: 20171023
  Transmission Date: 20180321
  Serious: Yes (Life-Threatening, Hospitalization)
  Sender: FDA-Public Use
  Company Number: GB-JNJFOC-20170928675

PATIENT
  Age: 1 Month
  Sex: Male

DRUGS (1)
  1. CALPOL [Suspect]
     Active Substance: ACETAMINOPHEN
     Indication: PYREXIA
     Route: 048
     Dates: start: 20170925, end: 20170925

REACTIONS (6)
  - Foreign body aspiration [Unknown]
  - Exposure via inhalation [Unknown]
  - Respiratory arrest [Unknown]
  - Syringe issue [Unknown]
  - Product use issue [Unknown]
  - Dysphagia [Unknown]

NARRATIVE: CASE EVENT DATE: 20170925
